FAERS Safety Report 15741630 (Version 2)
Quarter: 2019Q2

REPORT INFORMATION
  Report Type: Spontaneous
  Country: US (occurrence: US)
  Receive Date: 20181219
  Receipt Date: 20190515
  Transmission Date: 20190711
  Serious: Yes (Other)
  Sender: FDA-Public Use
  Company Number: US-SA-2018SA343530

PATIENT
  Age: 47 Year
  Sex: Female
  Weight: 131.52 kg

DRUGS (4)
  1. ENBREL [Concomitant]
     Active Substance: ETANERCEPT
     Indication: PSORIASIS
     Dosage: UNK
     Dates: start: 1996, end: 2009
  2. TAXOTERE [Suspect]
     Active Substance: DOCETAXEL
     Dosage: UNK
     Route: 042
     Dates: start: 201105, end: 201105
  3. TAXOTERE [Suspect]
     Active Substance: DOCETAXEL
     Indication: OVARIAN CANCER
     Dosage: UNK
     Route: 042
     Dates: start: 201102, end: 201102
  4. ENBREL [Concomitant]
     Active Substance: ETANERCEPT
     Dosage: UNK
     Dates: start: 2009

REACTIONS (3)
  - Psychological trauma [Unknown]
  - Alopecia [Recovering/Resolving]
  - Emotional distress [Unknown]

NARRATIVE: CASE EVENT DATE: 2011
